APPROVED DRUG PRODUCT: MILONTIN
Active Ingredient: PHENSUXIMIDE
Strength: 500MG
Dosage Form/Route: CAPSULE;ORAL
Application: N008855 | Product #004
Applicant: PARKE DAVIS DIV WARNER LAMBERT CO
Approved: Approved Prior to Jan 1, 1982 | RLD: No | RS: No | Type: DISCN